FAERS Safety Report 24876877 (Version 1)
Quarter: 2025Q1

REPORT INFORMATION
  Report Type: Spontaneous
  Country: US (occurrence: US)
  Receive Date: 20250123
  Receipt Date: 20250123
  Transmission Date: 20250409
  Serious: Yes (Hospitalization)
  Sender: EVOLUS, INC.
  Company Number: US-Evolus, Inc.-2025EV000005

PATIENT
  Age: 56 Year
  Sex: Female

DRUGS (1)
  1. JEUVEAU [Suspect]
     Active Substance: PRABOTULINUMTOXINA-XVFS
     Indication: Product use in unapproved indication

REACTIONS (8)
  - Dizziness [Unknown]
  - Hypoaesthesia [Unknown]
  - Vision blurred [Unknown]
  - Paraesthesia [Unknown]
  - Muscular weakness [Unknown]
  - Dyspnoea [Unknown]
  - Cardiac discomfort [Unknown]
  - Off label use [Unknown]

NARRATIVE: CASE EVENT DATE: 20241206
